FAERS Safety Report 4832768-4 (Version None)
Quarter: 2005Q4

REPORT INFORMATION
  Report Type: 
  Country: None (occurrence: None)
  Receive Date: 20051121
  Receipt Date: 20051114
  Transmission Date: 20060501
  Serious: Yes (Life-Threatening)
  Sender: FDA-Public Use
  Company Number: 2005AC01817

PATIENT
  Sex: Female
  Weight: 0.9 kg

DRUGS (4)
  1. ATENOLOL [Suspect]
     Indication: HYPERTENSION
     Route: 064
  2. RAMIPRIL [Suspect]
     Indication: HYPERTENSION
     Route: 064
  3. NIFEDIPINE [Concomitant]
     Route: 064
  4. HYDROXYCHLOROQUINE SULFATE [Concomitant]
     Route: 064

REACTIONS (6)
  - BLOOD CREATININE ABNORMAL [None]
  - BLOOD UREA INCREASED [None]
  - DRUG EXPOSURE DURING PREGNANCY [None]
  - JAUNDICE NEONATAL [None]
  - NEONATAL DISORDER [None]
  - NEONATAL RESPIRATORY DISTRESS SYNDROME [None]
